FAERS Safety Report 17212896 (Version 1)
Quarter: 2019Q4

REPORT INFORMATION
  Report Type: Spontaneous
  Country: SE (occurrence: SE)
  Receive Date: 20191230
  Receipt Date: 20191230
  Transmission Date: 20200122
  Serious: Yes (Hospitalization)
  Sender: FDA-Public Use
  Company Number: SE-TEVA-2019-SE-1158771

PATIENT

DRUGS (6)
  1. ZOPICLONE [Suspect]
     Active Substance: ZOPICLONE
     Dosage: 75 MG
     Route: 048
     Dates: start: 20180205, end: 20180205
  2. MELATONIN [Suspect]
     Active Substance: MELATONIN
     Dosage: ^CA 70 ST^
     Route: 048
     Dates: start: 20180205, end: 20180205
  3. VENLAFAXINE [Suspect]
     Active Substance: VENLAFAXINE HYDROCHLORIDE
     Dosage: ^UNCLEAR AMOUNT^
     Route: 048
     Dates: start: 20180205, end: 20180205
  4. APODORM [Suspect]
     Active Substance: NITRAZEPAM
     Dosage: ^DO NOT KNOW IT^S 1 MG 5 PC^
     Dates: start: 20180205, end: 20180205
  5. THERALEN [Suspect]
     Active Substance: TRIMEPRAZINE
     Dosage: 200 MG
     Route: 048
     Dates: start: 20180205, end: 20180205
  6. PROPAVAN [Suspect]
     Active Substance: PROPIOMAZINE
     Dosage: 400 MG
     Route: 048
     Dates: start: 20180205, end: 20180205

REACTIONS (2)
  - Intentional overdose [Unknown]
  - Intentional self-injury [Unknown]

NARRATIVE: CASE EVENT DATE: 20180205
